FAERS Safety Report 8797196 (Version 1)
Quarter: 2012Q4

REPORT INFORMATION
  Report Type: 
  Country: BR (occurrence: BR)
  Receive Date: 20120920
  Receipt Date: 20120920
  Transmission Date: 20130627
  Serious: Yes (Hospitalization)
  Sender: FDA-Public Use
  Company Number: BR-US-EMD SERONO, INC.-7156550

PATIENT
  Age: 63 None
  Sex: Female

DRUGS (4)
  1. REBIF [Suspect]
     Indication: MULTIPLE SCLEROSIS
     Dates: start: 20120604
  2. GABAPENTINE [Concomitant]
     Indication: PRODUCT USED FOR UNKNOWN INDICATION
  3. DIAZEPM (DIAZEPAM) [Concomitant]
     Indication: PRODUCT USED FOR UNKNOWN INDICATION
  4. VOLTAREM (VOLTAREN) [Concomitant]
     Indication: PRODUCT USED FOR UNKNOWN INDICATION

REACTIONS (7)
  - Injection site injury [Recovering/Resolving]
  - Injection site vesicles [Recovering/Resolving]
  - Injection site infection [Recovering/Resolving]
  - Hypoaesthesia [Recovering/Resolving]
  - Injection site erythema [Recovering/Resolving]
  - Myalgia [Recovering/Resolving]
  - Wrong technique in drug usage process [Unknown]
